FAERS Safety Report 12692462 (Version 1)
Quarter: 2016Q3

REPORT INFORMATION
  Report Type: Spontaneous
  Country: JP (occurrence: JP)
  Receive Date: 20160829
  Receipt Date: 20160829
  Transmission Date: 20161109
  Serious: Yes (Other)
  Sender: FDA-Public Use
  Company Number: JP-ROCHE-1820328

PATIENT
  Sex: Male

DRUGS (7)
  1. RIVOTRIL [Suspect]
     Active Substance: CLONAZEPAM
     Indication: PRODUCT USED FOR UNKNOWN INDICATION
     Route: 048
     Dates: end: 201607
  2. FAROM [Concomitant]
     Active Substance: FAROPENEM SODIUM
     Route: 048
     Dates: start: 20160711
  3. FAROM [Concomitant]
     Active Substance: FAROPENEM SODIUM
     Route: 048
     Dates: end: 20160802
  4. RIVOTRIL [Suspect]
     Active Substance: CLONAZEPAM
     Dosage: FRACTIONATION DOSE UNCERTAIN FREQUENCY AND DOSE INTERVAL UNCERTAINTY
     Route: 048
     Dates: start: 20160704, end: 20160715
  5. FAROM [Concomitant]
     Active Substance: FAROPENEM SODIUM
     Route: 048
     Dates: start: 20160613, end: 20160626
  6. BISOLVON [Concomitant]
     Active Substance: BROMHEXINE HYDROCHLORIDE
     Dosage: FRACTIONATION DOSE UNCERTAIN FREQUENCY AND DOSE INTERVAL UNCERTAINTY
     Route: 042
     Dates: start: 20160626
  7. LASIX [Concomitant]
     Active Substance: FUROSEMIDE
     Route: 042
     Dates: start: 20160626

REACTIONS (4)
  - White blood cell count increased [Unknown]
  - Toxicity to various agents [Unknown]
  - Respiratory failure [Recovering/Resolving]
  - Blood uric acid increased [Unknown]
